FAERS Safety Report 7950739-6 (Version None)
Quarter: 2011Q4

REPORT INFORMATION
  Report Type: 
  Country: None (occurrence: None)
  Receive Date: 20111201
  Receipt Date: 20111129
  Transmission Date: 20120403
  Serious: Yes (Death)
  Sender: FDA-Public Use
  Company Number: US-BAYER-2011-115128

PATIENT
  Age: 79 Year
  Sex: Male

DRUGS (1)
  1. NEXAVAR [Suspect]
     Indication: ILL-DEFINED DISORDER
     Dosage: 200 MG, BID
     Route: 048
     Dates: start: 20111103

REACTIONS (1)
  - DEATH [None]
